FAERS Safety Report 18812415 (Version 2)
Quarter: 2021Q1

REPORT INFORMATION
  Report Type: Report from Study
  Country: BR (occurrence: BR)
  Receive Date: 20210130
  Receipt Date: 20210227
  Transmission Date: 20210419
  Serious: Yes (Other)
  Sender: FDA-Public Use
  Company Number: BR-UCBSA-2021003131

PATIENT
  Age: 60 Year
  Sex: Female
  Weight: 122 kg

DRUGS (10)
  1. MATERNA [ASCORBIC ACID;BETACAROTENE;BIOTIN;CALCIUM CARBONATE;CALCIUM P [Concomitant]
     Active Substance: MINERALS\VITAMINS
     Indication: PRODUCT USED FOR UNKNOWN INDICATION
     Dosage: 1 TABLET DAILY
  2. PREDNISONA [Concomitant]
     Active Substance: PREDNISONE
     Indication: RHEUMATOID ARTHRITIS
  3. DOBEVEN [Concomitant]
     Indication: THROMBOSIS
     Dosage: 500 MILLIGRAM 2 TABLETS DAILY
     Route: 048
     Dates: start: 2016
  4. PREDNISONA [Concomitant]
     Active Substance: PREDNISONE
     Indication: THROMBOSIS
     Dosage: UNK
     Route: 048
     Dates: start: 202101
  5. ESIO [Concomitant]
     Indication: GASTRITIS
     Dosage: 1 TABLET DAILYUNK
  6. CERTOLIZUMAB PEGOL RA [Suspect]
     Active Substance: CERTOLIZUMAB PEGOL
     Indication: RHEUMATOID ARTHRITIS
     Dosage: UNK
     Route: 058
     Dates: start: 201911, end: 202011
  7. BUSONID [Concomitant]
     Active Substance: BUDESONIDE
     Indication: SLEEP APNOEA SYNDROME
     Dosage: UNK
     Route: 048
     Dates: start: 2016
  8. MOMETASONE [Concomitant]
     Active Substance: MOMETASONE
     Indication: THROMBOSIS
     Dosage: UNK
  9. VELIJA [Concomitant]
     Active Substance: DULOXETINE HYDROCHLORIDE
     Indication: DEPRESSION
     Dosage: UNK
     Route: 048
  10. CERTOLIZUMAB PEGOL RA [Suspect]
     Active Substance: CERTOLIZUMAB PEGOL
     Dosage: 200 MILLIGRAM, EV 15 DAYS
     Route: 058

REACTIONS (6)
  - Pruritus [Not Recovered/Not Resolved]
  - Therapy cessation [Unknown]
  - Arthralgia [Not Recovered/Not Resolved]
  - Drug hypersensitivity [Not Recovered/Not Resolved]
  - Thrombosis [Not Recovered/Not Resolved]
  - Memory impairment [Not Recovered/Not Resolved]

NARRATIVE: CASE EVENT DATE: 202011
